FAERS Safety Report 12938600 (Version 1)
Quarter: 2016Q4

REPORT INFORMATION
  Report Type: Spontaneous
  Country: US (occurrence: US)
  Receive Date: 20161115
  Receipt Date: 20161115
  Transmission Date: 20170207
  Serious: No
  Sender: FDA-Public Use
  Company Number: US-PFIZER INC-2016372761

PATIENT
  Age: 71 Year
  Sex: Female

DRUGS (4)
  1. TALIUM [Suspect]
     Active Substance: DIAZEPAM
     Dosage: UNK
  2. THORAZINE [Suspect]
     Active Substance: CHLORPROMAZINE
     Dosage: UNK
  3. PENTAZOCINE LACTATE [Suspect]
     Active Substance: PENTAZOCINE LACTATE
  4. CHLORPROMAZINE. [Suspect]
     Active Substance: CHLORPROMAZINE

REACTIONS (1)
  - Drug hypersensitivity [Unknown]
